FAERS Safety Report 15716002 (Version 2)
Quarter: 2018Q4

REPORT INFORMATION
  Report Type: Report from Study
  Country: FR (occurrence: FR)
  Receive Date: 20181213
  Receipt Date: 20181214
  Transmission Date: 20190205
  Serious: Yes (Hospitalization)
  Sender: FDA-Public Use
  Company Number: FR-ROCHE-2227061

PATIENT
  Age: 60 Year
  Sex: Male
  Weight: 85 kg

DRUGS (25)
  1. FUROSEMIDE. [Concomitant]
     Active Substance: FUROSEMIDE
     Route: 048
     Dates: start: 20181106, end: 20181107
  2. AVLOCARDYL [Concomitant]
     Active Substance: PROPRANOLOL HYDROCHLORIDE
     Route: 048
     Dates: start: 20181105
  3. BISOPROLOL [Concomitant]
     Active Substance: BISOPROLOL
     Indication: ATRIAL FIBRILLATION
     Route: 048
     Dates: start: 20181105, end: 20181105
  4. FILGRASTIM [Concomitant]
     Active Substance: FILGRASTIM
     Dosage: 30 MIU
     Route: 058
     Dates: start: 20180821, end: 20180824
  5. CEFTRIAXONE. [Concomitant]
     Active Substance: CEFTRIAXONE
     Indication: SEPSIS
     Route: 042
     Dates: start: 20180601, end: 20180601
  6. OBINUTUZUMAB. [Suspect]
     Active Substance: OBINUTUZUMAB
     Indication: NON-HODGKIN^S LYMPHOMA
     Dosage: ON DAYS 2, 8, AND 15 OF CYCLE 1 AND ON DAY 1 OF CYCLES 2 THOUGH 8
     Route: 042
     Dates: start: 20180524, end: 20180524
  7. CC-122 [Suspect]
     Active Substance: AVADOMIDE
     Indication: NON-HODGKIN^S LYMPHOMA
     Dosage: ON DAY 1 FOR 5 CONSECUTIVE DAYS FOLLOWED BY 2 DAYS OFF?MOST RECENT DOSE OF CC-122 (3 MG): 21/NOV/201
     Route: 048
     Dates: start: 20180523, end: 20180616
  8. CEFTRIAXONE. [Concomitant]
     Active Substance: CEFTRIAXONE
     Indication: ESCHERICHIA SEPSIS
     Route: 042
     Dates: start: 20181104, end: 20181110
  9. SERETIDE [Concomitant]
     Active Substance: FLUTICASONE PROPIONATE\SALMETEROL XINAFOATE
     Indication: ASTHMA
     Route: 055
  10. CEFTRIAXONE. [Concomitant]
     Active Substance: CEFTRIAXONE
     Indication: PYREXIA
     Route: 042
     Dates: start: 20180617, end: 20180617
  11. FUROSEMIDE. [Concomitant]
     Active Substance: FUROSEMIDE
     Indication: ATRIAL FIBRILLATION
     Route: 048
     Dates: start: 20181105, end: 20181105
  12. POTASSIUM CHLORIDE. [Concomitant]
     Active Substance: POTASSIUM CHLORIDE
     Dosage: HYPOKALEIA PROPHYLAXIS
     Route: 048
     Dates: start: 20181105, end: 20181109
  13. OXYGEN. [Concomitant]
     Active Substance: OXYGEN
     Indication: OESOPHAGEAL VARICES HAEMORRHAGE
     Dosage: 3 L/MIN
     Route: 055
     Dates: start: 20180526, end: 20180526
  14. OXYGEN. [Concomitant]
     Active Substance: OXYGEN
     Dosage: 3 L/MIN
     Route: 055
     Dates: start: 20181204, end: 20181205
  15. FUROSEMIDE. [Concomitant]
     Active Substance: FUROSEMIDE
     Route: 048
     Dates: start: 20181108, end: 20181109
  16. BACTRIM [Concomitant]
     Active Substance: SULFAMETHOXAZOLE\TRIMETHOPRIM
     Indication: INFECTION PROPHYLAXIS
     Route: 048
     Dates: start: 20161003
  17. VALACICLOVIR [Concomitant]
     Active Substance: VALACYCLOVIR HYDROCHLORIDE
     Dosage: HERPES ZOSTER PROPHYLAXIS
     Route: 048
     Dates: start: 20161003
  18. FILGRASTIM [Concomitant]
     Active Substance: FILGRASTIM
     Indication: NEUTROPENIA
     Dosage: 30 MIU
     Route: 058
     Dates: start: 20180817, end: 20180818
  19. FILGRASTIM [Concomitant]
     Active Substance: FILGRASTIM
     Dosage: 30 MIU
     Route: 058
     Dates: start: 20181101, end: 20181104
  20. TAZOCILLINE [Concomitant]
     Active Substance: PIPERACILLIN SODIUM\TAZOBACTAM SODIUM
     Indication: ESCHERICHIA SEPSIS
     Dosage: 4/0.5 GRAM
     Route: 042
     Dates: start: 20181101, end: 20181104
  21. CC-122 [Suspect]
     Active Substance: AVADOMIDE
     Dosage: 7TH CYCLE?DOSE INTERRUPTED ON 05/DEC/2018
     Route: 048
     Dates: start: 20181121, end: 20181202
  22. AVLOCARDYL [Concomitant]
     Active Substance: PROPRANOLOL HYDROCHLORIDE
     Indication: PORTAL HYPERTENSION
     Route: 048
     Dates: end: 20180528
  23. AVLOCARDYL [Concomitant]
     Active Substance: PROPRANOLOL HYDROCHLORIDE
     Route: 048
     Dates: start: 20180601, end: 20181101
  24. FILGRASTIM [Concomitant]
     Active Substance: FILGRASTIM
     Dosage: 30 MIU
     Route: 058
     Dates: start: 20180924, end: 20180925
  25. RINGER LACTATE B. BRAUN [Concomitant]
     Indication: ATRIAL FIBRILLATION
     Route: 042
     Dates: start: 20181204, end: 20181204

REACTIONS (1)
  - Lung infection [Recovered/Resolved]

NARRATIVE: CASE EVENT DATE: 20181204
